FAERS Safety Report 15646436 (Version 2)
Quarter: 2020Q2

REPORT INFORMATION
  Report Type: Spontaneous
  Country: ES (occurrence: ES)
  Receive Date: 20181122
  Receipt Date: 20200531
  Transmission Date: 20200713
  Serious: Yes (Hospitalization, Other)
  Sender: FDA-Public Use
  Company Number: ES-AUROBINDO-AUR-APL-2018-056188

PATIENT
  Age: 67 Year
  Sex: Male

DRUGS (5)
  1. AZITHROMYCIN 500 MG FILM-COATED TABLETS [Suspect]
     Active Substance: AZITHROMYCIN
     Dosage: 500 MILLIGRAM, DAILY, AZITRO/24H 6D
     Route: 048
     Dates: start: 20180910, end: 20180911
  2. IBUPROFEN. [Concomitant]
     Active Substance: IBUPROFEN
     Indication: PRODUCT USED FOR UNKNOWN INDICATION
     Dosage: UNK, HAS BEEN TAKING 1-2CP DAILY IN THE LAST WEEK
     Route: 048
  3. OMEPRAZOLE. [Concomitant]
     Active Substance: OMEPRAZOLE
     Indication: PRODUCT USED FOR UNKNOWN INDICATION
     Dosage: UNK
     Route: 065
  4. CAPOTEN [Concomitant]
     Active Substance: CAPTOPRIL
     Indication: PRODUCT USED FOR UNKNOWN INDICATION
     Dosage: 25 MILLIGRAM, TWO TIMES A DAY
     Route: 048
  5. ADIRO [Concomitant]
     Active Substance: ASPIRIN
     Indication: PRODUCT USED FOR UNKNOWN INDICATION
     Dosage: 300 MILLIGRAM, DAILY
     Route: 048

REACTIONS (4)
  - Anaphylactic reaction [Recovered/Resolved]
  - Chest pain [Recovered/Resolved]
  - Hypertensive crisis [Recovered/Resolved]
  - Bradycardia [Recovered/Resolved]

NARRATIVE: CASE EVENT DATE: 20180910
